FAERS Safety Report 9005660 (Version 1)
Quarter: 2013Q1

REPORT INFORMATION
  Report Type: Spontaneous
  Country: US (occurrence: US)
  Receive Date: 20130109
  Receipt Date: 20130109
  Transmission Date: 20140127
  Serious: Yes (Death)
  Sender: FDA-Public Use
  Company Number: US-PFIZER INC-2013005766

PATIENT
  Age: 35 Year
  Sex: Male

DRUGS (4)
  1. DIAZEPAM [Suspect]
  2. DOXEPIN HCL [Suspect]
  3. DIPHENHYDRAMINE [Suspect]
  4. ACETAMINOPHEN W/HYDROCODONE BITARTRATE [Suspect]

REACTIONS (2)
  - Drug abuse [Fatal]
  - Toxicity to various agents [None]
